FAERS Safety Report 4835605-7 (Version None)
Quarter: 2005Q4

REPORT INFORMATION
  Report Type: 
  Country: None (occurrence: None)
  Receive Date: 20051121
  Receipt Date: 20051107
  Transmission Date: 20060501
  Serious: Yes (Hospitalization, Other)
  Sender: FDA-Public Use
  Company Number: 2005153205

PATIENT
  Sex: Female

DRUGS (3)
  1. ZYVOX [Suspect]
     Indication: POSTOPERATIVE INFECTION
     Dosage: ORAL
     Route: 048
     Dates: start: 20050501, end: 20050601
  2. ANTIDEPRESSANTS (ANTIDEPRESSANTS) [Concomitant]
  3. ANTIHYPERTENSIVES (ANTIHYPERTENSIVES) [Concomitant]

REACTIONS (1)
  - GASTROENTERITIS [None]
